FAERS Safety Report 15560875 (Version 2)
Quarter: 2018Q4

REPORT INFORMATION
  Report Type: Spontaneous
  Country: US (occurrence: US)
  Receive Date: 20181029
  Receipt Date: 20181120
  Transmission Date: 20190205
  Serious: No
  Sender: FDA-Public Use
  Company Number: US-PFIZER INC-2018440707

PATIENT
  Age: 11 Year
  Sex: Male

DRUGS (2)
  1. CLARITIN [Concomitant]
     Active Substance: LORATADINE
     Indication: PRURITUS
     Dosage: 10 MG, DAILY
  2. EUCRISA [Suspect]
     Active Substance: CRISABOROLE
     Indication: DERMATITIS ATOPIC
     Dosage: UNK, 2X/DAY
     Route: 061
     Dates: start: 20180913

REACTIONS (1)
  - Drug ineffective [Not Recovered/Not Resolved]
